FAERS Safety Report 21376676 (Version 1)
Quarter: 2022Q3

REPORT INFORMATION
  Report Type: Spontaneous
  Country: CN (occurrence: CN)
  Receive Date: 20220926
  Receipt Date: 20220926
  Transmission Date: 20221026
  Serious: Yes (Other)
  Sender: FDA-Public Use
  Company Number: None

PATIENT
  Age: 53 Year
  Sex: Female
  Weight: 60 kg

DRUGS (4)
  1. CYCLOPHOSPHAMIDE [Suspect]
     Active Substance: CYCLOPHOSPHAMIDE
     Indication: Breast cancer female
     Dosage: 900 MG, QD, POWDER INJECTION, DILUTED WITH 0.9% SODIUM CHLORIDE (50ML), (START TIME 10:01)
     Route: 041
     Dates: start: 20220826, end: 20220826
  2. SODIUM CHLORIDE [Suspect]
     Active Substance: SODIUM CHLORIDE
     Indication: Medication dilution
     Dosage: 50 ML, QD, DILUTED IN CYCLOPHOSPHAMIDE (900 MG), (START TIME 10:01)
     Route: 041
     Dates: start: 20220826, end: 20220826
  3. SODIUM CHLORIDE [Suspect]
     Active Substance: SODIUM CHLORIDE
     Dosage: 250 ML, QD DILUTED IN DOCETAXEL (110 MG), (START TIME AFTER 10:24)
     Route: 041
     Dates: start: 20220826, end: 20220826
  4. DOCETAXEL [Suspect]
     Active Substance: DOCETAXEL
     Indication: Breast cancer female
     Dosage: 110 MG, QD, DILUTED IN 0.9% SODIUM CHLORIDE (250ML), (START TIME AFTER 10:24)
     Route: 041
     Dates: start: 20220826, end: 20220826

REACTIONS (3)
  - White blood cell count decreased [Recovered/Resolved]
  - Asthenia [Recovered/Resolved]
  - Fatigue [Unknown]

NARRATIVE: CASE EVENT DATE: 20220906
